FAERS Safety Report 17942203 (Version 1)
Quarter: 2020Q2

REPORT INFORMATION
  Report Type: Spontaneous
  Country: US (occurrence: US)
  Receive Date: 20200625
  Receipt Date: 20200625
  Transmission Date: 20200714
  Serious: Yes (Hospitalization)
  Sender: FDA-Public Use
  Company Number: None

PATIENT
  Sex: Female
  Weight: 54.9 kg

DRUGS (5)
  1. VINCRISTINE SULFATE. [Concomitant]
     Active Substance: VINCRISTINE SULFATE
  2. CYTARABINE. [Concomitant]
     Active Substance: CYTARABINE
  3. ONCASPAR [Concomitant]
     Active Substance: PEGASPARGASE
  4. METHOTREXATE. [Concomitant]
     Active Substance: METHOTREXATE
  5. DEXAMETHASONE. [Suspect]
     Active Substance: DEXAMETHASONE

REACTIONS (10)
  - Movement disorder [None]
  - Unresponsive to stimuli [None]
  - Respiration abnormal [None]
  - Hypertension [None]
  - Eye disorder [None]
  - Hypotonia [None]
  - Decreased appetite [None]
  - Abdominal pain [None]
  - Oral pain [None]
  - Seizure like phenomena [None]

NARRATIVE: CASE EVENT DATE: 20200615
